FAERS Safety Report 24261904 (Version 10)
Quarter: 2025Q3

REPORT INFORMATION
  Report Type: Report from Study
  Country: US (occurrence: US)
  Receive Date: 20240829
  Receipt Date: 20250930
  Transmission Date: 20251021
  Serious: Yes (Hospitalization, Other)
  Sender: TAKEDA
  Company Number: US-TAKEDA-2024TUS060081

PATIENT
  Age: 76 Year
  Sex: Female

DRUGS (4)
  1. LANADELUMAB [Suspect]
     Active Substance: LANADELUMAB
     Indication: Immune system disorder
     Dosage: 300 MILLIGRAM, Q2WEEKS
     Dates: start: 202404
  2. LANADELUMAB [Suspect]
     Active Substance: LANADELUMAB
     Dosage: 300 MILLIGRAM, Q2WEEKS
  3. LANADELUMAB [Suspect]
     Active Substance: LANADELUMAB
     Dosage: UNK UNK, Q2WEEKS
  4. LANADELUMAB [Suspect]
     Active Substance: LANADELUMAB
     Dosage: 300MG/2ML, Q2WEEKS

REACTIONS (9)
  - Small intestinal obstruction [Unknown]
  - Abdominal pain [Unknown]
  - Intestinal obstruction [Unknown]
  - Pain [Unknown]
  - Gastrointestinal scarring [Unknown]
  - Hereditary angioedema [Unknown]
  - Weight decreased [Unknown]
  - Scar [Unknown]
  - Weight increased [Unknown]

NARRATIVE: CASE EVENT DATE: 20240525
